FAERS Safety Report 19807845 (Version 1)
Quarter: 2021Q3

REPORT INFORMATION
  Report Type: Spontaneous
  Country: NL (occurrence: NL)
  Receive Date: 20210908
  Receipt Date: 20210908
  Transmission Date: 20211014
  Serious: Yes (Hospitalization)
  Sender: FDA-Public Use
  Company Number: NL-MYLANLABS-2021M1058705

PATIENT
  Sex: Female
  Weight: 67 kg

DRUGS (12)
  1. BACLOFEN. [Suspect]
     Active Substance: BACLOFEN
     Indication: MUSCLE SPASMS
     Dosage: 10 MILLIGRAM, Q6H 4 X PER DAY 10 MG USED INSTEAD OF PRESCRIBED 1 X PER
     Route: 065
     Dates: start: 202010
  2. APIXABAN [Concomitant]
     Active Substance: APIXABAN
     Dosage: UNK
  3. FERROFUMARAAT [Concomitant]
     Active Substance: FERROUS FUMARATE
     Dosage: UNK
  4. SPIRONOLACTON [Concomitant]
     Active Substance: SPIRONOLACTONE
     Dosage: UNK
  5. PRAMIPEXOL                         /01356401/ [Concomitant]
     Active Substance: PRAMIPEXOLE
     Dosage: UNK
  6. PANTOPRAZOL                        /01263201/ [Concomitant]
     Active Substance: PANTOPRAZOLE
     Dosage: UNK POWDER INJECTION LIQUID 40 MG
  7. PERINDOPRIL [Concomitant]
     Active Substance: PERINDOPRIL
     Dosage: UNK
  8. AMIODARON                          /00133101/ [Concomitant]
     Active Substance: AMIODARONE
     Dosage: UNK
  9. PARACETAMOL [Concomitant]
     Active Substance: ACETAMINOPHEN
     Dosage: UNK
  10. BISOPROLOL [Concomitant]
     Active Substance: BISOPROLOL
     Dosage: UNK
  11. ALENDRONINEZUUR/CHOLECALCIFEROL SANDOZ [Concomitant]
     Active Substance: ALENDRONATE SODIUM\CHOLECALCIFEROL
     Dosage: UNK
  12. BUMETANIDE. [Concomitant]
     Active Substance: BUMETANIDE
     Dosage: UNK

REACTIONS (4)
  - Akathisia [Recovered/Resolved]
  - Medication error [Unknown]
  - Myoclonus [Recovered/Resolved]
  - Hallucination [Recovered/Resolved]
